FAERS Safety Report 6349098-4 (Version None)
Quarter: 2009Q3

REPORT INFORMATION
  Report Type: 
  Country: None (occurrence: None)
  Receive Date: 20090911
  Receipt Date: 20090831
  Transmission Date: 20100115
  Serious: Yes (Hospitalization)
  Sender: FDA-Public Use
  Company Number: US-PFIZER INC-2008070038

PATIENT
  Sex: Male
  Weight: 83.3 kg

DRUGS (7)
  1. SUNITINIB MALATE [Suspect]
     Indication: RENAL CELL CARCINOMA
     Dosage: 25 MG, 1X/DAY
     Route: 048
     Dates: start: 20080325, end: 20080731
  2. GEMCITABINE [Suspect]
     Indication: RENAL CELL CARCINOMA
     Dosage: 600 MG/M2, UNK
     Dates: start: 20080325, end: 20080729
  3. OMEPRAZOLE [Concomitant]
     Dosage: DAILY
     Route: 048
     Dates: start: 20080314
  4. OMEPRAZOLE [Concomitant]
     Dosage: UNK
  5. LISINOPRIL [Concomitant]
     Dosage: DAILY
     Route: 048
     Dates: start: 20080314, end: 20080630
  6. RITALIN [Concomitant]
     Dosage: DAILY
     Route: 048
     Dates: start: 20080610
  7. AMBIEN [Concomitant]
     Dosage: AT BEDTIME AS NEEDED
     Route: 048
     Dates: start: 20080404, end: 20081021

REACTIONS (6)
  - DEHYDRATION [None]
  - DIARRHOEA [None]
  - GASTROENTERITIS [None]
  - NAUSEA [None]
  - ORTHOSTATIC HYPOTENSION [None]
  - VOMITING [None]
